FAERS Safety Report 24781726 (Version 1)
Quarter: 2024Q4

REPORT INFORMATION
  Report Type: Spontaneous
  Country: FR (occurrence: FR)
  Receive Date: 20241227
  Receipt Date: 20241227
  Transmission Date: 20250114
  Serious: Yes (Other)
  Sender: SANDOZ
  Company Number: FR-DialogSolutions-SAAVPROD-PI718398-C1

PATIENT
  Age: 54 Year
  Sex: Male

DRUGS (4)
  1. CYCLOPHOSPHAMIDE [Suspect]
     Active Substance: CYCLOPHOSPHAMIDE
     Indication: Chronic lymphocytic leukaemia
     Dosage: 500 MG/M2, QD (FOUR COURSES ADMINISTERED AT 4-WEEK INTERVALS)
     Route: 065
     Dates: start: 199907, end: 199910
  2. CYCLOPHOSPHAMIDE [Suspect]
     Active Substance: CYCLOPHOSPHAMIDE
     Dosage: 500 MG/M2, QD (FOUR COURSES ADMINISTERED AT 4-WEEK INTERVALS)
     Route: 065
     Dates: start: 199907, end: 199910
  3. FLUDARABINE PHOSPHATE [Suspect]
     Active Substance: FLUDARABINE PHOSPHATE
     Indication: Chronic lymphocytic leukaemia
     Dosage: 25 MG/M2, QD (FOUR COURSES ADMINISTERED AT 4-WEEK INTERVALS)
     Route: 065
     Dates: start: 199907, end: 199910
  4. FLUDARABINE PHOSPHATE [Suspect]
     Active Substance: FLUDARABINE PHOSPHATE
     Dosage: 25 MG/M2, QD (FOUR COURSES ADMINISTERED AT 4-WEEK INTERVALS)
     Route: 065
     Dates: start: 199907, end: 199910

REACTIONS (11)
  - Richter^s syndrome [Unknown]
  - Epstein-Barr virus associated lymphoproliferative disorder [Unknown]
  - Diffuse large B-cell lymphoma [Unknown]
  - Dysphagia [Unknown]
  - Lymphadenopathy [Unknown]
  - Tonsillar hypertrophy [Unknown]
  - Leukaemic infiltration [Unknown]
  - Tissue infiltration [Unknown]
  - Necrosis [Unknown]
  - Haemorrhage [Unknown]
  - Pyrexia [Unknown]

NARRATIVE: CASE EVENT DATE: 20000101
